FAERS Safety Report 16453746 (Version 1)
Quarter: 2019Q2

REPORT INFORMATION
  Report Type: Spontaneous
  Country: ES (occurrence: ES)
  Receive Date: 20190619
  Receipt Date: 20190619
  Transmission Date: 20190711
  Serious: Yes (Death, Hospitalization, Other)
  Sender: FDA-Public Use
  Company Number: ES-ASTRAZENECA-2019SE88480

PATIENT
  Age: 64 Year
  Sex: Male

DRUGS (3)
  1. OMEPRAZOLE. [Suspect]
     Active Substance: OMEPRAZOLE
     Route: 048
  2. METHOTREXATE. [Interacting]
     Active Substance: METHOTREXATE
     Indication: PYREXIA
     Dosage: 15 MG/WEEKLY DURING 1 MONTH OF TREATMENT
     Route: 065
  3. LOSARTAN. [Interacting]
     Active Substance: LOSARTAN
     Route: 065

REACTIONS (2)
  - Drug interaction [Fatal]
  - Pneumonitis [Fatal]
